FAERS Safety Report 9730830 (Version 1)
Quarter: 2013Q4

REPORT INFORMATION
  Report Type: Spontaneous
  Country: US (occurrence: US)
  Receive Date: 20131203
  Receipt Date: 20131203
  Transmission Date: 20140711
  Serious: Yes (Death)
  Sender: FDA-Public Use
  Company Number: US-JNJFOC-20131117851

PATIENT
  Sex: Male

DRUGS (1)
  1. BENADRYL UNSPECIFIED [Suspect]
     Indication: PRODUCT USED FOR UNKNOWN INDICATION
     Dosage: WHILE IN THE HOSPITAL HE WAS GIVEN IT TO HELP WITH CERTAIN REACTIONS
     Route: 065

REACTIONS (1)
  - Death [Fatal]
